FAERS Safety Report 5147985-6 (Version None)
Quarter: 2006Q4

REPORT INFORMATION
  Report Type: 
  Country: None (occurrence: None)
  Receive Date: 20061110
  Receipt Date: 20061030
  Transmission Date: 20070319
  Serious: Yes (Disabling, Other)
  Sender: FDA-Public Use
  Company Number: 2006GB01959

PATIENT
  Age: 48 Year
  Sex: Female

DRUGS (2)
  1. LIDOCAINE [Suspect]
     Route: 030
     Dates: start: 20060719
  2. METHYLPREDNISOLONE ACETATE [Suspect]
     Route: 030
     Dates: start: 20060719

REACTIONS (3)
  - CHEST DISCOMFORT [None]
  - HEADACHE [None]
  - VOMITING [None]
